FAERS Safety Report 6582542-6 (Version None)
Quarter: 2010Q1

REPORT INFORMATION
  Report Type: 
  Country: None (occurrence: None)
  Receive Date: 20100203
  Receipt Date: 20100119
  Transmission Date: 20100710
  Serious: Yes (Other)
  Sender: FDA-Public Use
  Company Number: 2009S1004127

PATIENT
  Age: 73 Year
  Sex: Female

DRUGS (6)
  1. PHOSPHOSODA FLAVOR          NOT SPECIFIED [Suspect]
     Indication: COLONOSCOPY
     Dosage: 90 ML; TOTAL; PO
     Route: 048
     Dates: start: 20070613
  2. DIOVAN /01319601/ [Concomitant]
  3. SPIRIVA [Concomitant]
  4. TRIAMTERENE AND HYDROCHLOROTHIAZIDE [Concomitant]
  5. FLONASE [Concomitant]
  6. XOPENEX [Concomitant]

REACTIONS (2)
  - HYPERTENSION [None]
  - RENAL FAILURE [None]
